FAERS Safety Report 4355577-1 (Version None)
Quarter: 2004Q2

REPORT INFORMATION
  Report Type: 
  Country: None (occurrence: None)
  Receive Date: 20040510
  Receipt Date: 20040428
  Transmission Date: 20050107
  Serious: Yes (Other)
  Sender: FDA-Public Use
  Company Number: US-GLAXOSMITHKLINE-A0508772A

PATIENT
  Sex: Male

DRUGS (2)
  1. AVANDAMET [Suspect]
     Indication: DIABETES MELLITUS NON-INSULIN-DEPENDENT
     Route: 048
  2. INSULIN [Concomitant]

REACTIONS (1)
  - MACULAR OEDEMA [None]
